FAERS Safety Report 25711207 (Version 1)
Quarter: 2025Q3

REPORT INFORMATION
  Report Type: Spontaneous
  Country: US (occurrence: US)
  Receive Date: 20250821
  Receipt Date: 20250821
  Transmission Date: 20251020
  Serious: No
  Sender: SANOFI AVENTIS
  Company Number: US-SA-2025SA247867

PATIENT
  Age: 9 Year
  Sex: Female
  Weight: 26.3 kg

DRUGS (1)
  1. DUPIXENT [Suspect]
     Active Substance: DUPILUMAB
     Indication: Dermatitis atopic
     Dosage: 300 MG, Q4W
     Route: 058
     Dates: start: 20250729

REACTIONS (2)
  - Eczema [Unknown]
  - Perioral dermatitis [Unknown]

NARRATIVE: CASE EVENT DATE: 20250101
